FAERS Safety Report 9753710 (Version 1)
Quarter: 2013Q4

REPORT INFORMATION
  Report Type: Spontaneous
  Country: AU (occurrence: AU)
  Receive Date: 20131213
  Receipt Date: 20131213
  Transmission Date: 20140711
  Serious: Yes (Hospitalization)
  Sender: FDA-Public Use
  Company Number: AU-ABBVIE-13P-008-1177466-00

PATIENT
  Sex: Female

DRUGS (1)
  1. HUMIRA [Suspect]
     Indication: CROHN^S DISEASE
     Dates: end: 20130716

REACTIONS (4)
  - Intestinal stenosis [Unknown]
  - Abdominal adhesions [Unknown]
  - Intestinal resection [Unknown]
  - Post procedural infection [Unknown]
